FAERS Safety Report 12842737 (Version 3)
Quarter: 2016Q4

REPORT INFORMATION
  Report Type: Spontaneous
  Country: US (occurrence: US)
  Receive Date: 20161013
  Receipt Date: 20161228
  Transmission Date: 20170207
  Serious: Yes (Death)
  Sender: FDA-Public Use
  Company Number: US-PFIZER INC-2016376041

PATIENT
  Age: 50 Year
  Sex: Female
  Weight: 77 kg

DRUGS (2)
  1. XALKORI [Suspect]
     Active Substance: CRIZOTINIB
     Indication: CERVIX CANCER METASTATIC
     Dosage: 250 MG, 1X/DAY
     Dates: start: 20160823, end: 20160902
  2. HYDROCODONE [Concomitant]
     Active Substance: HYDROCODONE
     Indication: PAIN
     Dosage: UNK, (1-2 TABLETS EVERY 4 HOURS)
     Dates: start: 201609, end: 201609

REACTIONS (3)
  - Dysphagia [Not Recovered/Not Resolved]
  - Death [Fatal]
  - Product use issue [Unknown]

NARRATIVE: CASE EVENT DATE: 20160823
